FAERS Safety Report 6668935-7 (Version None)
Quarter: 2010Q2

REPORT INFORMATION
  Report Type: 
  Country: None (occurrence: None)
  Receive Date: 20100402
  Receipt Date: 20100324
  Transmission Date: 20101027
  Serious: Yes (Other)
  Sender: FDA-Public Use
  Company Number: 2010US001021

PATIENT
  Age: 73 Year
  Sex: Male

DRUGS (1)
  1. VESICARE [Suspect]
     Indication: POLLAKIURIA
     Dosage: 5 MG D, ORAL
     Route: 048
     Dates: start: 20090101

REACTIONS (2)
  - BLADDER CANCER [None]
  - TREATMENT NONCOMPLIANCE [None]
